FAERS Safety Report 5081194-4 (Version None)
Quarter: 2006Q3

REPORT INFORMATION
  Report Type: 
  Country: None (occurrence: None)
  Receive Date: 20060810
  Receipt Date: 20060728
  Transmission Date: 20061208
  Serious: Yes (Other)
  Sender: FDA-Public Use
  Company Number: 36002

PATIENT

DRUGS (2)
  1. NEVANAC [Suspect]
     Indication: MACULAR OEDEMA
  2. PRED FORTE [Concomitant]

REACTIONS (1)
  - CORNEAL PERFORATION [None]
